FAERS Safety Report 25320479 (Version 3)
Quarter: 2025Q3

REPORT INFORMATION
  Report Type: Other
  Country: US (occurrence: US)
  Receive Date: 20250515
  Receipt Date: 20250917
  Transmission Date: 20251020
  Serious: No
  Sender: TRAVERE THERAPEUTICS
  Company Number: US-TRAVERE-2025TVT00689

PATIENT
  Age: 40 Year
  Sex: Male

DRUGS (2)
  1. FILSPARI [Suspect]
     Active Substance: SPARSENTAN
     Indication: IgA nephropathy
     Route: 048
     Dates: start: 20250509
  2. FILSPARI [Suspect]
     Active Substance: SPARSENTAN
     Dosage: PATIENT STARTED CUTTING TABLETS IN HALF
     Route: 048

REACTIONS (3)
  - Blood pressure systolic decreased [None]
  - Off label use [Unknown]
  - Drug intolerance [Unknown]

NARRATIVE: CASE EVENT DATE: 20250509
